FAERS Safety Report 18297038 (Version 3)
Quarter: 2020Q4

REPORT INFORMATION
  Report Type: Report from Study
  Country: FR (occurrence: FR)
  Receive Date: 20200922
  Receipt Date: 20201201
  Transmission Date: 20210113
  Serious: Yes (Hospitalization)
  Sender: FDA-Public Use
  Company Number: NVSC2020FR253885

PATIENT
  Sex: Male
  Weight: 59 kg

DRUGS (2)
  1. VOTRIENT [Suspect]
     Active Substance: PAZOPANIB HYDROCHLORIDE
     Indication: RENAL CANCER
     Dosage: UNK, DAILY
     Route: 048
     Dates: start: 20200814, end: 20200814
  2. AXITINIB [Suspect]
     Active Substance: AXITINIB
     Indication: RENAL CANCER
     Dosage: 5 MG (2 DOSAGES)
     Route: 065
     Dates: start: 20200821, end: 20200908

REACTIONS (6)
  - Cardiac failure [Recovered/Resolved]
  - Nausea [Unknown]
  - General physical health deterioration [Recovered/Resolved]
  - Ejection fraction decreased [Recovered/Resolved]
  - Acute kidney injury [Recovered/Resolved]
  - Dyspnoea [Recovered/Resolved]

NARRATIVE: CASE EVENT DATE: 202009
